FAERS Safety Report 13384631 (Version 1)
Quarter: 2017Q1

REPORT INFORMATION
  Report Type: Spontaneous
  Country: US (occurrence: US)
  Receive Date: 20170329
  Receipt Date: 20170329
  Transmission Date: 20170429
  Serious: Yes (Life-Threatening, Disabling, Other)
  Sender: FDA-Public Use
  Company Number: None

PATIENT
  Age: 62 Year
  Sex: Male
  Weight: 69.75 kg

DRUGS (5)
  1. LISINOPRIL. [Suspect]
     Active Substance: LISINOPRIL
  2. ENTRESTA [Concomitant]
  3. FLOWMAX [Concomitant]
  4. CEREGASRON [Concomitant]
     Active Substance: IRSOGLADINE MALEATE
  5. VITAMIN C [Concomitant]
     Active Substance: ASCORBIC ACID

REACTIONS (3)
  - Chronic kidney disease [None]
  - Renal function test abnormal [None]
  - Hypotension [None]

NARRATIVE: CASE EVENT DATE: 20160322
